FAERS Safety Report 4570981-4 (Version None)
Quarter: 2005Q1

REPORT INFORMATION
  Report Type: 
  Country: None (occurrence: None)
  Receive Date: 20050204
  Receipt Date: 20050127
  Transmission Date: 20050727
  Serious: Yes (Hospitalization, Disabling)
  Sender: FDA-Public Use
  Company Number: DE-MERCK-0501DEU00275

PATIENT
  Sex: Female

DRUGS (1)
  1. VIOXX [Suspect]
     Route: 048
     Dates: start: 20020201, end: 20040801

REACTIONS (6)
  - BLINDNESS [None]
  - BLINDNESS UNILATERAL [None]
  - CONTUSION [None]
  - FALL [None]
  - FEBRILE CONVULSION [None]
  - HAEMATOMA [None]
